FAERS Safety Report 5306093-1 (Version None)
Quarter: 2007Q2

REPORT INFORMATION
  Report Type: 
  Country: None (occurrence: None)
  Receive Date: 20070424
  Receipt Date: 20060706
  Transmission Date: 20071010
  Serious: Yes (Hospitalization, Other)
  Sender: FDA-Public Use
  Company Number: US-BRISTOL-MYERS SQUIBB COMPANY-13439682

PATIENT
  Age: 60 Year
  Weight: 97 kg

DRUGS (5)
  1. CARBOPLATIN [Suspect]
     Indication: NON-SMALL CELL LUNG CANCER
     Route: 042
     Dates: start: 20060221, end: 20060607
  2. TAXOL [Concomitant]
     Indication: NON-SMALL CELL LUNG CANCER
  3. ASPIRIN [Concomitant]
  4. KYTRIL [Concomitant]
     Indication: PREMEDICATION
     Route: 042
     Dates: start: 20060607, end: 20060607
  5. DECADRON [Concomitant]
     Indication: PREMEDICATION
     Route: 042
     Dates: start: 20060607, end: 20060607

REACTIONS (1)
  - INFUSION RELATED REACTION [None]
